FAERS Safety Report 4688445-6 (Version None)
Quarter: 2005Q2

REPORT INFORMATION
  Report Type: 
  Country: None (occurrence: None)
  Receive Date: 20050609
  Receipt Date: 20050524
  Transmission Date: 20051028
  Serious: Yes (Hospitalization)
  Sender: FDA-Public Use
  Company Number: 2005PL000039

PATIENT
  Age: 65 Year
  Sex: Female

DRUGS (8)
  1. AZATHIOPRINE [Suspect]
     Dosage: 150 + 50 MG;QD;PO
     Route: 048
     Dates: start: 19960101, end: 20000101
  2. AZATHIOPRINE [Suspect]
     Dosage: 150 + 50 MG;QD;PO
     Route: 048
     Dates: start: 20000101, end: 20020101
  3. AZATHIOPRINE [Suspect]
     Dosage: 150 + 50 MG;QD;PO
     Route: 048
     Dates: start: 20020101
  4. ALLOPURINOL [Suspect]
     Indication: HYPERURICAEMIA
     Dosage: 300 MG/QD;UNKNOWN
     Dates: start: 20020101
  5. ENALAPRIL MALEATE [Concomitant]
  6. METFORMIN HCL [Concomitant]
  7. METHYLPREDNISOLONE [Concomitant]
  8. FALITHROM ^FAHLBERG^ [Concomitant]

REACTIONS (12)
  - ASTHENIA [None]
  - BONE MARROW DEPRESSION [None]
  - BONE MARROW TOXICITY [None]
  - DIARRHOEA [None]
  - DYSPNOEA [None]
  - EPISTAXIS [None]
  - INJECTION SITE HAEMORRHAGE [None]
  - OEDEMA PERIPHERAL [None]
  - PANCYTOPENIA [None]
  - PETECHIAE [None]
  - PYREXIA [None]
  - WEIGHT DECREASED [None]
